FAERS Safety Report 16571466 (Version 1)
Quarter: 2019Q3

REPORT INFORMATION
  Report Type: Spontaneous
  Country: US (occurrence: US)
  Receive Date: 20190715
  Receipt Date: 20190715
  Transmission Date: 20191004
  Serious: Yes (Other)
  Sender: FDA-Public Use
  Company Number: US-MYLANLABS-2019M1065094

PATIENT
  Age: 71 Year
  Sex: Male

DRUGS (5)
  1. BUPIVACAINE. [Suspect]
     Active Substance: BUPIVACAINE
     Indication: LOCAL ANAESTHESIA
     Dosage: 6 CC OF A 1:1 MIXTURE OF BUPIVACAINE AND LIDOCAINE
     Route: 056
  2. PROPOFOL. [Concomitant]
     Active Substance: PROPOFOL
     Indication: SEDATIVE THERAPY
     Route: 065
  3. LIDOCAINE. [Suspect]
     Active Substance: LIDOCAINE
     Indication: LOCAL ANAESTHESIA
     Dosage: 6 CC OF A 1:1 MIXTURE OF BUPIVACAINE AND LIDOCAINE
     Route: 056
  4. PHENYLEPHRINE [Concomitant]
     Active Substance: PHENYLEPHRINE HYDROCHLORIDE
     Indication: PREOPERATIVE CARE
     Route: 047
  5. CYCLOPENTOLATE. [Concomitant]
     Active Substance: CYCLOPENTOLATE
     Indication: PREOPERATIVE CARE
     Route: 047

REACTIONS (3)
  - Product administration error [Recovered/Resolved]
  - Amaurosis [Recovered/Resolved]
  - Intra-ocular injection complication [Recovered/Resolved]
